FAERS Safety Report 11623483 (Version 1)
Quarter: 2015Q4

REPORT INFORMATION
  Report Type: Spontaneous
  Country: US (occurrence: None)
  Receive Date: 20151009
  Receipt Date: 20151009
  Transmission Date: 20160304
  Serious: Yes (Life-Threatening, Hospitalization, Disabling)
  Sender: FDA-Public Use
  Company Number: None

PATIENT
  Age: 61 Year
  Sex: Female
  Weight: 81.19 kg

DRUGS (4)
  1. MIRTAZAPINE 1MG [Suspect]
     Active Substance: MIRTAZAPINE
     Indication: ANXIETY
     Dosage: 1 PILL
     Route: 048
     Dates: start: 20150401, end: 20150901
  2. VITAMIN D [Concomitant]
     Active Substance: CHOLECALCIFEROL
  3. HBP PILLS [Concomitant]
  4. LEXAPRO [Concomitant]
     Active Substance: ESCITALOPRAM OXALATE

REACTIONS (5)
  - Chest pain [None]
  - Fall [None]
  - Asthenia [None]
  - Cough [None]
  - Seizure [None]

NARRATIVE: CASE EVENT DATE: 20150601
